FAERS Safety Report 19019386 (Version 1)
Quarter: 2021Q1

REPORT INFORMATION
  Report Type: Spontaneous
  Country: GB (occurrence: GB)
  Receive Date: 20210317
  Receipt Date: 20210317
  Transmission Date: 20210420
  Serious: Yes (Hospitalization)
  Sender: FDA-Public Use
  Company Number: GB-MYLANLABS-2021M1014961

PATIENT
  Age: 61 Year
  Sex: Male

DRUGS (1)
  1. CLOZARIL [Suspect]
     Active Substance: CLOZAPINE
     Indication: SCHIZOPHRENIA
     Dosage: UNK
     Route: 048
     Dates: start: 20090819, end: 20210309

REACTIONS (11)
  - Hallucination, auditory [Unknown]
  - Haemoglobin decreased [Recovered/Resolved]
  - Mean cell haemoglobin decreased [Recovered/Resolved]
  - Flushing [Unknown]
  - Malaise [Unknown]
  - Thrombocytopenia [Recovered/Resolved]
  - Vomiting [Unknown]
  - Mean cell haemoglobin concentration decreased [Recovering/Resolving]
  - Abdominal pain upper [Unknown]
  - Psychotic disorder [Unknown]
  - Pyrexia [Unknown]

NARRATIVE: CASE EVENT DATE: 20210111
